FAERS Safety Report 7818361-X (Version None)
Quarter: 2011Q4

REPORT INFORMATION
  Report Type: 
  Country: None (occurrence: None)
  Receive Date: 20111017
  Receipt Date: 20111006
  Transmission Date: 20120403
  Serious: Yes (Other)
  Sender: FDA-Public Use
  Company Number: ES-ASTRAZENECA-2011SE60018

PATIENT
  Age: 74 Year
  Sex: Female

DRUGS (8)
  1. ESOMEPRAZOLE SODIUM [Suspect]
     Route: 048
  2. GLICOFOSFOPEPTICAL [Concomitant]
  3. URSODESOXICOLIC ACID [Concomitant]
  4. B COMPLEX ELX [Concomitant]
  5. INDAPAMIDA [Concomitant]
  6. LORAZEPAM [Concomitant]
  7. RANITIDINE [Concomitant]
  8. DOMPERIDONA [Concomitant]

REACTIONS (1)
  - CUTANEOUS LUPUS ERYTHEMATOSUS [None]
